FAERS Safety Report 25031843 (Version 1)
Quarter: 2025Q1

REPORT INFORMATION
  Report Type: Spontaneous
  Country: CA (occurrence: CA)
  Receive Date: 20250303
  Receipt Date: 20250303
  Transmission Date: 20250408
  Serious: Yes (Death)
  Sender: SAMSUNG BIOEPIS
  Company Number: CA-SAMSUNG BIOEPIS-SB-2025-07596

PATIENT
  Age: 77 Year
  Sex: Male

DRUGS (1)
  1. BYOOVIZ [Suspect]
     Active Substance: RANIBIZUMAB-NUNA
     Indication: Product used for unknown indication
     Dates: start: 20240110, end: 20241113

REACTIONS (1)
  - Death [Fatal]

NARRATIVE: CASE EVENT DATE: 20250110
